FAERS Safety Report 4359751-X (Version None)
Quarter: 2004Q2

REPORT INFORMATION
  Report Type: 
  Country: None (occurrence: None)
  Receive Date: 20040518
  Receipt Date: 20040507
  Transmission Date: 20050107
  Serious: Yes (Hospitalization)
  Sender: FDA-Public Use
  Company Number: FR-JNJFOC-20031005438

PATIENT
  Sex: Female

DRUGS (4)
  1. HALDOL DECANOATE 50 [Suspect]
     Route: 030
  2. HALDOL DECANOATE 50 [Suspect]
     Indication: SCHIZOPHRENIA
     Route: 030
  3. DEPO-PROVERA [Concomitant]
     Dosage: 1 DOSE = 1 VIAL
     Route: 030
  4. TERCIAN [Concomitant]

REACTIONS (2)
  - AGITATION [None]
  - PARKINSONISM [None]
